FAERS Safety Report 15617191 (Version 2)
Quarter: 2018Q4

REPORT INFORMATION
  Report Type: Spontaneous
  Country: CA (occurrence: CA)
  Receive Date: 20181114
  Receipt Date: 20181119
  Transmission Date: 20190205
  Serious: Yes (Other)
  Sender: FDA-Public Use
  Company Number: CA-PFIZER INC-2018408180

PATIENT
  Age: 37 Year
  Sex: Female

DRUGS (5)
  1. METHOTREXATE SODIUM. [Suspect]
     Active Substance: METHOTREXATE SODIUM
     Dosage: 250 MG, THREE TIMES A DAY
     Route: 048
     Dates: start: 201806
  2. PREDNISONE. [Concomitant]
     Active Substance: PREDNISONE
     Dosage: 20 MG, 1X/DAY; STARTED AT 30 MG TAPERING
     Route: 048
     Dates: start: 201806
  3. PREDNISONE. [Concomitant]
     Active Substance: PREDNISONE
     Dosage: 30 MG, 1X/DAY
     Route: 048
  4. CIPROFLOXACIN. [Concomitant]
     Active Substance: CIPROFLOXACIN
     Indication: CONDITION AGGRAVATED
     Dosage: 250 MG, 2X/DAY (FOR 10 DAYS)
     Dates: start: 20180927, end: 201810
  5. IRON [Concomitant]
     Active Substance: IRON
     Dosage: 1 DF, 1X/DAY
     Route: 048
     Dates: start: 201808

REACTIONS (3)
  - Product use issue [Unknown]
  - Anal fissure [Unknown]
  - Drug ineffective [Unknown]

NARRATIVE: CASE EVENT DATE: 2018
